FAERS Safety Report 12947901 (Version 1)
Quarter: 2016Q4

REPORT INFORMATION
  Report Type: Spontaneous
  Country: US (occurrence: US)
  Receive Date: 20161117
  Receipt Date: 20161117
  Transmission Date: 20170207
  Serious: No
  Sender: FDA-Public Use
  Company Number: US-009507513-1611USA002634

PATIENT
  Sex: Female

DRUGS (30)
  1. GEMFIBROZIL. [Concomitant]
     Active Substance: GEMFIBROZIL
     Dosage: 600MG (1 TABLET), BID
     Route: 048
  2. VITAMINS (UNSPECIFIED) [Concomitant]
     Active Substance: VITAMINS
     Dosage: 1 DF, QD
  3. CALCIUM CITRATE (+) VITAMIN D (UNSPECIFIED) [Concomitant]
     Dosage: UNK, Q12H; STRENGTH: 315/ 250 (UNITS UNSPECIFIED)
  4. OXYGEN. [Concomitant]
     Active Substance: OXYGEN
     Dosage: 21/ MIN BY INHALATION CONTINUOUSLY; 41/MIN WITH ACTIVITY
  5. PANTOPRAZOLE [Concomitant]
     Active Substance: PANTOPRAZOLE SODIUM
     Dosage: 80MG (2 TABLETS), BID
     Route: 048
  6. SULFAMETHOXAZOLE (+) TRIMETHOPRIM [Concomitant]
     Active Substance: SULFAMETHOXAZOLE\TRIMETHOPRIM
     Dosage: 800/160 MG (1 TABLET), TIW
     Route: 048
  7. NOXAFIL [Concomitant]
     Active Substance: POSACONAZOLE
     Dosage: 3 TABLETS, QD
     Route: 048
  8. AMLODIPINE [Concomitant]
     Active Substance: AMLODIPINE BESYLATE
     Dosage: 5MG (1TABLET), QD
     Route: 048
  9. AZITHROMYCIN ANHYDROUS. [Concomitant]
     Active Substance: AZITHROMYCIN ANHYDROUS
     Dosage: 250MG (1 TABLET), TIW
     Route: 048
  10. MAGNESIUM OXIDE. [Concomitant]
     Active Substance: MAGNESIUM OXIDE
     Dosage: 1 TABLET, QD
     Route: 048
  11. POLYETHYLENE GLYCOL [Concomitant]
     Active Substance: POLYETHYLENE GLYCOLS
     Indication: CONSTIPATION
     Dosage: 1 PACKET, QD
  12. PROMETHAZINE HYDROCHLORIDE. [Concomitant]
     Active Substance: PROMETHAZINE HYDROCHLORIDE
     Dosage: 12.5 MG(1 TABLET), EVERY FOUR HOURS AS NEEDED
     Route: 048
  13. GABAPENTIN. [Concomitant]
     Active Substance: GABAPENTIN
     Dosage: 3 CAPSULES, TID
     Route: 048
  14. MYCOPHENOLATE SODIUM [Concomitant]
     Active Substance: MYCOPHENOLATE SODIUM
     Dosage: 1000MG (4 CAPSULES), QD
     Route: 048
  15. NYSTATIN. [Concomitant]
     Active Substance: NYSTATIN
     Dosage: 5 ML SWISH AND SWALLOW, QID; STRENGTH: 100000 UNIT/ ML
     Route: 048
  16. ONDANSETRON [Concomitant]
     Active Substance: ONDANSETRON
     Dosage: 4MG (1 TABLET), EVERY 8 HOURS AS NEEDED
     Route: 048
  17. ERGOCALCIFEROL. [Concomitant]
     Active Substance: ERGOCALCIFEROL
     Dosage: ONE CAPSULE ONCE A WEEK FOR 8 DOSES; STRENGTH: 50000 (UNITS UNSPECIFIED)
     Route: 048
  18. FOSAMAX [Suspect]
     Active Substance: ALENDRONATE SODIUM
     Dosage: 70MG (1 TABLET), QW
     Route: 048
  19. FUROSEMIDE. [Concomitant]
     Active Substance: FUROSEMIDE
     Dosage: 20MG (1 TABLET), QD
     Route: 048
  20. ASPIRIN. [Concomitant]
     Active Substance: ASPIRIN
     Dosage: 81MG (1 TABLET), QD
     Route: 048
  21. PREDNISONE. [Concomitant]
     Active Substance: PREDNISONE
     Dosage: 10MG (1 TABLET), QD
     Route: 048
  22. ENOXAPARIN SODIUM. [Concomitant]
     Active Substance: ENOXAPARIN SODIUM
     Dosage: 0.8MG, Q12H
     Route: 058
  23. ACETAMINOPHEN. [Concomitant]
     Active Substance: ACETAMINOPHEN
     Dosage: 1-2 TABLETS,Q4H
     Route: 048
  24. DICYCLOMINE HYDROCHLORIDE. [Concomitant]
     Active Substance: DICYCLOMINE HYDROCHLORIDE
     Dosage: 10MG (1 CAPSULE), QID
     Route: 048
  25. PRAVASTATIN. [Concomitant]
     Active Substance: PRAVASTATIN
     Dosage: ONCE DAILY AT BED TIME
     Route: 048
  26. VALGANCICLOVIR HYDROCHLORIDE. [Concomitant]
     Active Substance: VALGANCICLOVIR HYDROCHLORIDE
     Dosage: UNK, QD
     Route: 048
  27. DOCUSATE SODIUM. [Concomitant]
     Active Substance: DOCUSATE SODIUM
     Dosage: 100MG (1 CAPSULE), BID
     Route: 048
  28. MELATONIN [Concomitant]
     Active Substance: MELATONIN
     Dosage: 1 TO 3 TABLETS, HS
     Route: 048
  29. METOPROLOL. [Concomitant]
     Active Substance: METOPROLOL
     Dosage: 100MG (1 TABLET), BID
     Route: 048
  30. TACROLIMUS. [Concomitant]
     Active Substance: TACROLIMUS
     Dosage: 1 CAPSULE, BID
     Route: 048

REACTIONS (1)
  - Adverse event [Unknown]
